FAERS Safety Report 8127061-0 (Version None)
Quarter: 2012Q1

REPORT INFORMATION
  Report Type: 
  Country: None (occurrence: None)
  Receive Date: 20120210
  Receipt Date: 20120201
  Transmission Date: 20120608
  Serious: Yes (Hospitalization)
  Sender: FDA-Public Use
  Company Number: JP-JNJFOC-20120203128

PATIENT
  Age: 70 Year
  Sex: Female

DRUGS (4)
  1. METHOTREXATE [Suspect]
     Indication: RHEUMATOID VASCULITIS
     Route: 065
  2. REMICADE [Suspect]
     Indication: RHEUMATOID VASCULITIS
     Route: 042
  3. PREDNISOLONE [Suspect]
     Indication: RHEUMATOID VASCULITIS
     Route: 065
  4. AZATHIOPRINE SODIUM [Suspect]
     Indication: RHEUMATOID VASCULITIS
     Route: 065

REACTIONS (1)
  - LISTERIOSIS [None]
